FAERS Safety Report 5118008-X (Version None)
Quarter: 2006Q3

REPORT INFORMATION
  Report Type: 
  Country: None (occurrence: None)
  Receive Date: 20060928
  Receipt Date: 20060928
  Transmission Date: 20061208
  Serious: Yes (Other)
  Sender: FDA-Public Use
  Company Number: None

PATIENT
  Age: 34 Year
  Sex: Female
  Weight: 77.1115 kg

DRUGS (1)
  1. LEVAQUIN [Suspect]
     Indication: SINUSITIS
     Dosage: 1 DAILY PO
     Route: 048
     Dates: start: 20060901, end: 20060905

REACTIONS (6)
  - ARTHRALGIA [None]
  - BURNING SENSATION [None]
  - DISCOMFORT [None]
  - HEADACHE [None]
  - SWELLING [None]
  - TENDON DISORDER [None]
